FAERS Safety Report 6140223-7 (Version None)
Quarter: 2009Q2

REPORT INFORMATION
  Report Type: 
  Country: None (occurrence: None)
  Receive Date: 20090401
  Receipt Date: 20090324
  Transmission Date: 20091009
  Serious: No
  Sender: FDA-Public Use
  Company Number: US-B.I. PHARMACEUTICALS,INC./RIDGEFIELD-2009-BP-03688BP

PATIENT
  Sex: Female

DRUGS (6)
  1. ZANTAC 150 [Suspect]
     Indication: PROPHYLAXIS
     Route: 048
     Dates: start: 20090309
  2. LIPITOR [Concomitant]
     Indication: BLOOD CHOLESTEROL INCREASED
     Route: 048
  3. ALDACTONE [Concomitant]
     Route: 048
  4. SYNTHROID [Concomitant]
     Route: 048
  5. LEBATELOL [Concomitant]
     Route: 048
  6. ISOSORBIDE [Concomitant]
     Route: 048

REACTIONS (1)
  - DIARRHOEA [None]
